FAERS Safety Report 21066099 (Version 1)
Quarter: 2022Q3

REPORT INFORMATION
  Report Type: Spontaneous
  Country: CN (occurrence: CN)
  Receive Date: 20220711
  Receipt Date: 20220711
  Transmission Date: 20221027
  Serious: Yes (Other)
  Sender: FDA-Public Use
  Company Number: CN-PFIZER INC-PV202200019298

PATIENT
  Age: 55 Year
  Sex: Female
  Weight: 52.5 kg

DRUGS (10)
  1. EPIRUBICIN [Suspect]
     Active Substance: EPIRUBICIN
     Indication: Diffuse large B-cell lymphoma
     Dosage: 110 MG, 1X/DAY
     Route: 041
     Dates: start: 20220216, end: 20220216
  2. MABTHERA [Suspect]
     Active Substance: RITUXIMAB
     Indication: Diffuse large B-cell lymphoma
     Dosage: 0.1 G, 1X/DAY
     Route: 041
     Dates: start: 20220215, end: 20220215
  3. MABTHERA [Suspect]
     Active Substance: RITUXIMAB
     Dosage: 0.5 G, 1X/DAY
     Route: 041
     Dates: start: 20220215, end: 20220215
  4. CYCLOPHOSPHAMIDE [Suspect]
     Active Substance: CYCLOPHOSPHAMIDE
     Indication: Diffuse large B-cell lymphoma
     Dosage: 1.17 G, 1X/DAY
     Route: 041
     Dates: start: 20220216, end: 20220216
  5. VINDESINE SULFATE [Suspect]
     Active Substance: VINDESINE SULFATE
     Indication: Diffuse large B-cell lymphoma
     Dosage: 4 MG, 1X/DAY
     Route: 042
     Dates: start: 20220216, end: 20220216
  6. SODIUM CHLORIDE [Concomitant]
     Active Substance: SODIUM CHLORIDE
     Indication: Vehicle solution use
     Dosage: 90 ML, 1X/DAY
     Route: 041
     Dates: start: 20220215, end: 20220215
  7. SODIUM CHLORIDE [Concomitant]
     Active Substance: SODIUM CHLORIDE
     Dosage: 450 ML, 1X/DAY
     Route: 041
     Dates: start: 20220215, end: 20220215
  8. SODIUM CHLORIDE [Concomitant]
     Active Substance: SODIUM CHLORIDE
     Dosage: 100 ML, 1X/DAY
     Route: 041
     Dates: start: 20220216, end: 20220216
  9. SODIUM CHLORIDE [Concomitant]
     Active Substance: SODIUM CHLORIDE
     Dosage: 100 ML, 1X/DAY
     Route: 041
     Dates: start: 20220216, end: 20220216
  10. SODIUM CHLORIDE [Concomitant]
     Active Substance: SODIUM CHLORIDE
     Dosage: 40 ML, 1X/DAY
     Route: 042
     Dates: start: 20220216, end: 20220216

REACTIONS (4)
  - Cytopenia [Recovering/Resolving]
  - White blood cell count decreased [Recovering/Resolving]
  - Neutrophil count decreased [Recovering/Resolving]
  - Platelet count decreased [Recovering/Resolving]

NARRATIVE: CASE EVENT DATE: 20220225
